FAERS Safety Report 13927758 (Version 2)
Quarter: 2017Q3

REPORT INFORMATION
  Report Type: Spontaneous
  Country: KR (occurrence: KR)
  Receive Date: 20170901
  Receipt Date: 20170913
  Transmission Date: 20171127
  Serious: Yes (Other)
  Sender: FDA-Public Use
  Company Number: KR-REGENERON PHARMACEUTICALS, INC.-2017-21194

PATIENT

DRUGS (12)
  1. EYLEA [Suspect]
     Active Substance: AFLIBERCEPT
     Dosage: 0.05 ML, LEFT EYE, SECOND INJECTION
     Dates: start: 20161101, end: 20161101
  2. EYLEA [Suspect]
     Active Substance: AFLIBERCEPT
     Dosage: 0.05 ML, LEFT EYE, THIRD INJECTION
     Dates: start: 20170109, end: 20170109
  3. EYLEA [Suspect]
     Active Substance: AFLIBERCEPT
     Dosage: 0.05 ML, LEFT EYE, 4TH INJECTION
     Dates: start: 20170313, end: 20170313
  4. BEVACIZUMAB. [Concomitant]
     Active Substance: BEVACIZUMAB
     Dosage: 0.05 ML, LEFT EYE
     Dates: start: 20170109, end: 20170109
  5. BEVACIZUMAB. [Concomitant]
     Active Substance: BEVACIZUMAB
     Dosage: 0.05 ML, LEFT EYE
     Dates: start: 20170313, end: 20170313
  6. EYLEA [Suspect]
     Active Substance: AFLIBERCEPT
     Indication: PRODUCT USED FOR UNKNOWN INDICATION
     Dosage: 0.05 ML, LEFT EYE, FIRST DOSE
     Dates: start: 20160822, end: 20160822
  7. BEVACIZUMAB. [Concomitant]
     Active Substance: BEVACIZUMAB
     Dosage: 0.05 ML, LEFT EYE
     Dates: start: 20160822, end: 20160822
  8. RANIBIZUMAB. [Concomitant]
     Active Substance: RANIBIZUMAB
     Indication: PRODUCT USED FOR UNKNOWN INDICATION
     Dosage: 0.05 ML, LEFT EYE, RECEIVED THREE DOSES
     Dates: start: 20160513, end: 20160718
  9. EYLEA [Suspect]
     Active Substance: AFLIBERCEPT
     Dosage: 0.05 ML, LEFT EYE, 5TH INJECTION, TOTAL OF 5 INJECTIONS RECEIVED. LAST DOSE PRIOR EVENT.
     Dates: start: 20170515, end: 20170515
  10. BEVACIZUMAB. [Concomitant]
     Active Substance: BEVACIZUMAB
     Indication: PRODUCT USED FOR UNKNOWN INDICATION
     Dosage: 0.05 ML, LEFT EYE
     Dates: start: 20160812, end: 20160812
  11. BEVACIZUMAB. [Concomitant]
     Active Substance: BEVACIZUMAB
     Dosage: 0.05 ML, LEFT EYE
     Dates: start: 20170725, end: 20170725
  12. BEVACIZUMAB. [Concomitant]
     Active Substance: BEVACIZUMAB
     Dosage: 0.05 ML, LEFT EYE
     Dates: start: 20170515, end: 20170515

REACTIONS (2)
  - Visual acuity reduced [Not Recovered/Not Resolved]
  - Subretinal fluid [Unknown]

NARRATIVE: CASE EVENT DATE: 2017
